FAERS Safety Report 22064368 (Version 1)
Quarter: 2023Q1

REPORT INFORMATION
  Report Type: Spontaneous
  Country: US (occurrence: US)
  Receive Date: 20230306
  Receipt Date: 20230306
  Transmission Date: 20230418
  Serious: Yes (Other)
  Sender: FDA-Public Use
  Company Number: US-PFIZER INC-PV202300011269

PATIENT
  Age: 67 Year
  Sex: Female

DRUGS (1)
  1. IBRANCE [Suspect]
     Active Substance: PALBOCICLIB
     Indication: Breast cancer female
     Dosage: DAILY, TAKE ONE TABLET PO DAILY FOR 21 DAY FOLLOW BY 7 DAYS OFF
     Route: 048

REACTIONS (2)
  - Breast conserving surgery [Unknown]
  - Neoplasm progression [Unknown]
